FAERS Safety Report 7821732-9 (Version None)
Quarter: 2011Q4

REPORT INFORMATION
  Report Type: 
  Country: None (occurrence: None)
  Receive Date: 20111018
  Receipt Date: 20101129
  Transmission Date: 20120403
  Serious: No
  Sender: FDA-Public Use
  Company Number: US-ASTRAZENECA-2010SE34046

PATIENT
  Age: 70 Year
  Sex: Female
  Weight: 88 kg

DRUGS (39)
  1. DOCUSATE SODIUM [Concomitant]
     Indication: FAECES HARD
  2. DOXYCYCLINE HYCLATE [Concomitant]
  3. FLUTICASONE PROPIONATE [Concomitant]
  4. LANOLIN/MIN OIL/PETROLATUM OINT [Concomitant]
  5. OUTPATIENT MEDS REVIEWED [Concomitant]
  6. GLYCERIN [Concomitant]
  7. ASPIRIN [Concomitant]
  8. CALCIUM CARBONATE [Concomitant]
  9. MULTI-VITAMINS [Concomitant]
  10. PSYLLIUM SEED/SUCROSE PWD [Concomitant]
  11. ALBUTEROL [Concomitant]
  12. DESOXIMETASONE [Concomitant]
  13. OMEPRAZOLE [Concomitant]
     Indication: GASTROOESOPHAGEAL REFLUX DISEASE
  14. ZOLEDRONIC ACID [Concomitant]
  15. LORATADINE [Concomitant]
  16. SYMBICORT [Suspect]
     Dosage: 160/4.5
     Route: 055
  17. CHOLECALCIFEROL [Concomitant]
  18. MAGNESIUM SALT [Concomitant]
  19. METRONIDAZOLE [Concomitant]
     Indication: ROSACEA
  20. SYMBICORT [Suspect]
     Dosage: 80/4.5, 2 PUFFS
     Route: 055
  21. MUPIROCIN [Concomitant]
  22. PETROLAT WHT/MIN OIL/SOD CHL OIN [Concomitant]
  23. LACTASE [Concomitant]
  24. MECLIZINE HYDROCHLORIDE [Concomitant]
  25. SORBITOL SOLUTION [Concomitant]
     Indication: CONSTIPATION
  26. TACROLIMUS [Concomitant]
     Indication: INFLAMMATION
  27. LISINOPRIL [Suspect]
     Route: 048
  28. AZELASTINE HCL [Concomitant]
     Indication: RHINITIS
  29. FUROSEMIDE [Concomitant]
  30. FLUTICASONE PROPIONATE [Concomitant]
  31. SODIUM CHLORIDE INJ [Concomitant]
  32. CME-CELL SOD [Concomitant]
  33. HYDROCODONE BITARTRATE [Concomitant]
  34. LIDOCAINE HCL [Concomitant]
  35. PHENEGRAN WITH CODEINE SYRUP [Concomitant]
  36. ACIDOPHILUS CAPLET [Concomitant]
  37. MOMETASONE FUROATE [Concomitant]
  38. NITROGLYCERIN [Concomitant]
     Indication: ANGINA PECTORIS
  39. IPRATROPIUM BROMIDE [Concomitant]

REACTIONS (9)
  - OEDEMA PERIPHERAL [None]
  - JOINT SWELLING [None]
  - SWELLING [None]
  - PAIN IN EXTREMITY [None]
  - COUGH [None]
  - BACK PAIN [None]
  - ABDOMINAL DISTENSION [None]
  - WEIGHT INCREASED [None]
  - ARTHRALGIA [None]
